FAERS Safety Report 9724499 (Version 1)
Quarter: 2013Q4

REPORT INFORMATION
  Report Type: Spontaneous
  Country: CH (occurrence: CH)
  Receive Date: 20131202
  Receipt Date: 20131202
  Transmission Date: 20140711
  Serious: Yes (Hospitalization)
  Sender: FDA-Public Use
  Company Number: CH-PFIZER INC-2013341771

PATIENT
  Age: 28 Year
  Sex: Female

DRUGS (1)
  1. DOSTINEX [Suspect]
     Indication: HYPERPROLACTINAEMIA
     Dosage: UNK
     Dates: start: 20131015

REACTIONS (4)
  - Grand mal convulsion [Unknown]
  - Loss of consciousness [Unknown]
  - Vertigo [Unknown]
  - Abdominal pain upper [Unknown]
